FAERS Safety Report 4430119-0 (Version None)
Quarter: 2004Q3

REPORT INFORMATION
  Report Type: 
  Country: None (occurrence: None)
  Receive Date: 20040820
  Receipt Date: 20040806
  Transmission Date: 20050211
  Serious: Yes (Hospitalization)
  Sender: FDA-Public Use
  Company Number: CA-ROCHE-376909

PATIENT
  Age: 57 Year
  Sex: Female
  Weight: 67 kg

DRUGS (1)
  1. XELODA [Suspect]
     Indication: GALLBLADDER CANCER
     Dosage: STRENGTH: 150 MG OR 500 MG.
     Route: 048
     Dates: start: 20040721, end: 20040804

REACTIONS (12)
  - ABDOMINAL DISCOMFORT [None]
  - ABDOMINAL PAIN [None]
  - DECREASED APPETITE [None]
  - DIARRHOEA [None]
  - DYSMENORRHOEA [None]
  - MELAENA [None]
  - MENORRHAGIA [None]
  - OESOPHAGEAL PAIN [None]
  - OESOPHAGITIS [None]
  - ORAL DISCOMFORT [None]
  - PARAESTHESIA [None]
  - STOMATITIS [None]
